FAERS Safety Report 9224425 (Version 1)
Quarter: 2013Q2

REPORT INFORMATION
  Report Type: Report from Study
  Country: CO (occurrence: CO)
  Receive Date: 20130411
  Receipt Date: 20130411
  Transmission Date: 20140414
  Serious: Yes (Death)
  Sender: FDA-Public Use
  Company Number: CO-SANOFI-AVENTIS-2013SA036960

PATIENT
  Age: 82 Year
  Sex: Female

DRUGS (2)
  1. INSULIN GLARGINE [Suspect]
     Indication: DIABETES MELLITUS
     Route: 058
     Dates: start: 201209, end: 201303
  2. VERAPAMIL [Concomitant]
     Indication: HYPERTENSION
     Route: 048
     Dates: end: 201303

REACTIONS (1)
  - Hepatocellular carcinoma [Fatal]
